FAERS Safety Report 5767714-2 (Version None)
Quarter: 2008Q2

REPORT INFORMATION
  Report Type: 
  Country: None (occurrence: None)
  Receive Date: 20080610
  Receipt Date: 20080528
  Transmission Date: 20081010
  Serious: Yes (Other)
  Sender: FDA-Public Use
  Company Number: B0523997A

PATIENT
  Age: 26 Year
  Sex: Female

DRUGS (2)
  1. LAMICTAL [Suspect]
     Indication: EPILEPSY
     Dosage: 200 MG / TWICE PER DAY / ORAL
     Route: 048
  2. VALPROATE SODIUM [Suspect]
     Indication: EPILEPSY
     Dosage: 500 MG / PER DAY / ORAL
     Route: 048

REACTIONS (1)
  - SERUM FERRITIN INCREASED [None]
